FAERS Safety Report 8453359-2 (Version None)
Quarter: 2012Q2

REPORT INFORMATION
  Report Type: 
  Country: None (occurrence: None)
  Receive Date: 20120620
  Receipt Date: 20120514
  Transmission Date: 20120825
  Serious: No
  Sender: FDA-Public Use
  Company Number: US-VERTEX PHARMACEUTICALS INC.-AE-2012-007109

PATIENT
  Sex: Male
  Weight: 79.45 kg

DRUGS (10)
  1. HYDROCODONE BITARTRATE AND ACETAMINOPHEN [Concomitant]
     Indication: CHEST PAIN
     Route: 048
  2. PAROXETINE [Concomitant]
     Indication: DEPRESSION
     Route: 048
  3. LISINOPRIL [Concomitant]
     Indication: HYPERTENSION
     Route: 048
  4. PEG-INTRON [Concomitant]
     Indication: HEPATITIS C
     Route: 058
     Dates: start: 20120511
  5. BUPROPION HCL [Concomitant]
     Indication: DEPRESSION
     Route: 048
  6. FLEXERIL [Concomitant]
     Indication: CHEST PAIN
     Route: 048
  7. INCIVEK [Suspect]
     Indication: HEPATITIS C
     Route: 048
     Dates: start: 20120511
  8. RIBAVIRIN [Concomitant]
     Indication: HEPATITIS C
     Route: 048
     Dates: start: 20120511
  9. AMBIEN [Concomitant]
     Route: 048
  10. GABAPENTIN [Concomitant]
     Indication: CHEST PAIN

REACTIONS (4)
  - TOOTHACHE [None]
  - NAUSEA [None]
  - PYREXIA [None]
  - ORAL PAIN [None]
